FAERS Safety Report 7460055-7 (Version None)
Quarter: 2011Q2

REPORT INFORMATION
  Report Type: 
  Country: None (occurrence: None)
  Receive Date: 20110505
  Receipt Date: 20110425
  Transmission Date: 20111010
  Serious: Yes (Disabling, Other)
  Sender: FDA-Public Use
  Company Number: PHHY2011IT35394

PATIENT
  Sex: Female

DRUGS (6)
  1. ANASTROZOLE [Concomitant]
  2. CHLORHEXIDINE [Concomitant]
  3. BONDRONAT [Suspect]
     Indication: METASTASES TO BONE
     Dosage: UNK
     Route: 042
     Dates: start: 20070816, end: 20090815
  4. UNASYN [Concomitant]
  5. ZOMETA [Suspect]
     Indication: METASTASES TO BONE
     Dosage: UNK
     Route: 042
     Dates: start: 20050701, end: 20070815
  6. FULVESTRANT [Concomitant]
     Indication: METASTASES TO BONE
     Dosage: UNK
     Dates: start: 20100101

REACTIONS (2)
  - OSTEONECROSIS OF JAW [None]
  - CARDIOTOXICITY [None]
